FAERS Safety Report 7185013-1 (Version None)
Quarter: 2010Q4

REPORT INFORMATION
  Report Type: 
  Country: None (occurrence: None)
  Receive Date: 20101222
  Receipt Date: 20101209
  Transmission Date: 20110411
  Serious: Yes (Hospitalization)
  Sender: FDA-Public Use
  Company Number: PHFR2010GB05851

PATIENT
  Sex: Female

DRUGS (1)
  1. GLEEVEC [Suspect]
     Indication: CHRONIC MYELOID LEUKAEMIA
     Dosage: UNK
     Route: 065
     Dates: end: 20101208

REACTIONS (4)
  - ASTHMA [None]
  - CARDIAC FAILURE [None]
  - DYSPNOEA [None]
  - OBSTRUCTIVE AIRWAYS DISORDER [None]
